FAERS Safety Report 21774358 (Version 1)
Quarter: 2022Q4

REPORT INFORMATION
  Report Type: Spontaneous
  Country: US (occurrence: US)
  Receive Date: 20221224
  Receipt Date: 20221224
  Transmission Date: 20230113
  Serious: Yes (Death, Other)
  Sender: FDA-Public Use
  Company Number: US-TORRENT-00012123

PATIENT
  Age: 32 Week
  Sex: Male

DRUGS (1)
  1. SIROLIMUS [Suspect]
     Active Substance: SIROLIMUS
     Indication: Venolymphatic malformation
     Dosage: SYSTEMIC SIROLIMUS
     Route: 065

REACTIONS (1)
  - Pulmonary haemorrhage [Fatal]
